FAERS Safety Report 5133583-7 (Version None)
Quarter: 2006Q4

REPORT INFORMATION
  Report Type: 
  Country: None (occurrence: None)
  Receive Date: 20061024
  Receipt Date: 20060808
  Transmission Date: 20070319
  Serious: Yes (Life-Threatening, Hospitalization)
  Sender: FDA-Public Use
  Company Number: BE-BAYER-200613544GDS

PATIENT
  Age: 73 Year
  Sex: Male
  Weight: 58 kg

DRUGS (9)
  1. SORAFENIB [Suspect]
     Indication: NEOPLASM MALIGNANT
     Dosage: TOTAL DAILY DOSE: 800 MG
     Route: 048
     Dates: start: 20060715, end: 20060808
  2. SORAFENIB [Suspect]
     Dosage: TOTAL DAILY DOSE: 800 MG
     Route: 048
     Dates: start: 20060818, end: 20060911
  3. ELTHYRONE [Concomitant]
     Indication: HYPOTHYROIDISM
     Route: 048
     Dates: end: 20060912
  4. ELTHYRONE [Concomitant]
     Route: 048
     Dates: start: 20060727, end: 20060727
  5. ACETAMINOPHEN [Concomitant]
     Indication: PAIN PROPHYLAXIS
     Route: 048
     Dates: end: 20060912
  6. CODEINE [Concomitant]
     Indication: PAIN PROPHYLAXIS
     Route: 048
     Dates: end: 20060912
  7. CALCIUM GLUCONATE [Concomitant]
     Indication: HYPOCALCAEMIA
     Route: 048
     Dates: end: 20060912
  8. CREON [AMYLASE,LIPASE,PROTEASE] [Concomitant]
     Indication: DYSPEPSIA
     Route: 048
     Dates: end: 20060912
  9. DOCOMEPRA [Concomitant]
     Indication: PROPHYLAXIS AGAINST GASTROINTESTINAL ULCER
     Route: 048
     Dates: end: 20060912

REACTIONS (1)
  - CARDIOMYOPATHY ALCOHOLIC [None]
